FAERS Safety Report 8125382-9 (Version None)
Quarter: 2012Q1

REPORT INFORMATION
  Report Type: 
  Country: None (occurrence: None)
  Receive Date: 20120209
  Receipt Date: 20120206
  Transmission Date: 20120608
  Serious: Yes (Other)
  Sender: FDA-Public Use
  Company Number: DE-GLAXOSMITHKLINE-D0074392A

PATIENT
  Age: 8 Year
  Sex: Male

DRUGS (2)
  1. MULTIPLE MEDICATIONS [Concomitant]
     Route: 065
  2. ATRIANCE [Suspect]
     Route: 042

REACTIONS (4)
  - GUILLAIN-BARRE SYNDROME [None]
  - BLINDNESS [None]
  - NERVOUS SYSTEM DISORDER [None]
  - DRUG INTERACTION [None]
